FAERS Safety Report 15568579 (Version 1)
Quarter: 2018Q4

REPORT INFORMATION
  Report Type: Other
  Country: GB (occurrence: GB)
  Receive Date: 20181031
  Receipt Date: 20181031
  Transmission Date: 20190205
  Serious: No
  Sender: FDA-Public Use
  Company Number: GB-LUPIN PHARMACEUTICALS INC.-2018-02838

PATIENT
  Age: 71 Year
  Sex: Female
  Weight: 75 kg

DRUGS (13)
  1. AMOXICILLIN. [Concomitant]
     Active Substance: AMOXICILLIN
     Indication: ILL-DEFINED DISORDER
     Dosage: 1 DF, TID
     Route: 065
     Dates: start: 20180122, end: 20180127
  2. CEFALEXIN [Concomitant]
     Active Substance: CEPHALEXIN
     Indication: ILL-DEFINED DISORDER
     Dosage: 1 DF, TID
     Route: 065
     Dates: start: 20180130, end: 20180206
  3. CO-DYDRAMOL [Concomitant]
     Active Substance: ACETAMINOPHEN\DIHYDROCODEINE
     Indication: ILL-DEFINED DISORDER
     Dosage: TAKE 1 OR 2, 4 TIMES/DAY
     Route: 065
     Dates: start: 20171213
  4. CO-AMOXICLAV                       /00756801/ [Concomitant]
     Active Substance: AMOXICILLIN\CLAVULANIC ACID
     Indication: ILL-DEFINED DISORDER
     Dosage: 1 DF, TID
     Route: 065
     Dates: start: 20180221, end: 20180228
  5. LISINOPRIL. [Suspect]
     Active Substance: LISINOPRIL
     Indication: PRODUCT USED FOR UNKNOWN INDICATION
     Dosage: UNK
     Route: 065
     Dates: start: 20180110
  6. QVAR [Concomitant]
     Active Substance: BECLOMETHASONE DIPROPIONATE
     Indication: ILL-DEFINED DISORDER
     Dosage: 1 DOSE TWICE DAILY
     Route: 055
     Dates: start: 20171213
  7. QUININE BISULFATE [Concomitant]
     Active Substance: QUININE BISULFATE
     Indication: ILL-DEFINED DISORDER
     Dosage: 1 DF, QD (ONE  IN  EVENING)
     Route: 065
     Dates: start: 20171213
  8. HYOSCINE BUTYLBROMIDE [Concomitant]
     Active Substance: BUTYLSCOPOLAMINE
     Indication: ILL-DEFINED DISORDER
     Dosage: 2 DF, QID
     Route: 065
     Dates: start: 20171213
  9. SUKKARTO [Concomitant]
     Active Substance: METFORMIN HYDROCHLORIDE
     Indication: ILL-DEFINED DISORDER
     Dosage: 1 G, QD
     Dates: start: 20171213
  10. LINAGLIPTIN [Concomitant]
     Active Substance: LINAGLIPTIN
     Indication: ILL-DEFINED DISORDER
     Dosage: 1 DF, QD
     Route: 065
     Dates: start: 20171213
  11. OMEPRAZOLE. [Concomitant]
     Active Substance: OMEPRAZOLE
     Indication: ILL-DEFINED DISORDER
     Dosage: 1 DF, QD
     Route: 065
     Dates: start: 20171213
  12. QUESTRAN [Concomitant]
     Active Substance: CHOLESTYRAMINE
     Indication: ILL-DEFINED DISORDER
     Dosage: ONE TO ONE AND A HALF SACHETS DAILY
     Route: 065
     Dates: start: 20171213
  13. LOSARTAN. [Concomitant]
     Active Substance: LOSARTAN
     Indication: HYPERTENSION
     Dosage: 1 DF, QD, TAKE ONE EVERY MORNING
     Route: 065
     Dates: start: 20180319

REACTIONS (1)
  - Cough [Recovered/Resolved]

NARRATIVE: CASE EVENT DATE: 20180319
